FAERS Safety Report 4382669-3 (Version None)
Quarter: 2004Q2

REPORT INFORMATION
  Report Type: 
  Country: None (occurrence: None)
  Receive Date: 20040617
  Receipt Date: 20040609
  Transmission Date: 20050107
  Serious: Yes (Hospitalization)
  Sender: FDA-Public Use
  Company Number: 200411816GDS

PATIENT
  Age: 77 Year
  Sex: Male

DRUGS (5)
  1. ASPIRIN [Suspect]
     Indication: PROPHYLAXIS
     Dosage: 100 MG, QD, ORAL
     Route: 048
  2. PLAVIX [Suspect]
     Indication: PROPHYLAXIS
     Dosage: 75 MG, QD, ORAL
     Route: 048
     Dates: end: 20040501
  3. TENORMIN [Suspect]
     Dates: end: 20040505
  4. GLUCOPHAGE [Concomitant]
  5. FOLVITE [Concomitant]

REACTIONS (9)
  - BLOOD PRESSURE SYSTOLIC INCREASED [None]
  - BRADYCARDIA [None]
  - CONTUSION [None]
  - DRUG INTERACTION [None]
  - FALL [None]
  - HEAD INJURY [None]
  - LACERATION [None]
  - PSYCHOMOTOR RETARDATION [None]
  - SUBARACHNOID HAEMORRHAGE [None]
